FAERS Safety Report 10737951 (Version 1)
Quarter: 2015Q1

REPORT INFORMATION
  Report Type: Spontaneous
  Country: US (occurrence: US)
  Receive Date: 20150126
  Receipt Date: 20150126
  Transmission Date: 20150721
  Serious: No
  Sender: FDA-Public Use
  Company Number: US-SA-2014SA159852

PATIENT
  Sex: Female

DRUGS (4)
  1. VITAMIN B12 [Concomitant]
     Active Substance: CYANOCOBALAMIN
  2. LOSARTAN [Concomitant]
     Active Substance: LOSARTAN
  3. BIOTIN [Concomitant]
     Active Substance: BIOTIN
  4. LASIX [Suspect]
     Active Substance: FUROSEMIDE
     Route: 065

REACTIONS (3)
  - Dysphagia [Unknown]
  - Dysphonia [Unknown]
  - Hypertension [Unknown]
